FAERS Safety Report 20159409 (Version 1)
Quarter: 2021Q4

REPORT INFORMATION
  Report Type: Spontaneous
  Country: FR (occurrence: FR)
  Receive Date: 20211208
  Receipt Date: 20211208
  Transmission Date: 20220303
  Serious: Yes (Life-Threatening, Hospitalization)
  Sender: FDA-Public Use
  Company Number: FR-SUN PHARMACEUTICAL INDUSTRIES LTD-2021RR-319135

PATIENT
  Age: 45 Year
  Sex: Male
  Weight: 54 kg

DRUGS (7)
  1. PREGABALIN [Suspect]
     Active Substance: PREGABALIN
     Indication: Substance use
     Dosage: OCCASIONAL CATCH, UNK
     Route: 048
  2. PAROXETINE HYDROCHLORIDE [Suspect]
     Active Substance: PAROXETINE HYDROCHLORIDE
     Indication: Depression
     Dosage: 20 MILLIGRAM, DAILY, 20 MG/J
     Route: 048
     Dates: start: 2019
  3. LOXAPINE [Suspect]
     Active Substance: LOXAPINE
     Indication: Psychotic disorder
     Dosage: 75 MILLIGRAM, DAILY, 75 MG/J
     Route: 048
     Dates: start: 202101
  4. ATARAX [Suspect]
     Active Substance: HYDROXYZINE HYDROCHLORIDE
     Indication: Anxiety
     Dosage: 25 MILLIGRAM, DAILY, 25MG/J
     Route: 048
  5. QUETIAPINE [Suspect]
     Active Substance: QUETIAPINE
     Indication: Depression
     Dosage: 350 MILLIGRAM, DAILY, UNK
     Route: 048
     Dates: start: 2019
  6. BUPRENORPHINE MYLAN 8 mg, comprime sublingual [Concomitant]
     Indication: Drug dependence
     Dosage: 16 MILLIGRAM, DAILY, 8 MG*2X/J
     Route: 048
     Dates: start: 2012
  7. BIKTARVY [Concomitant]
     Active Substance: BICTEGRAVIR SODIUM\EMTRICITABINE\TENOFOVIR ALAFENAMIDE FUMARATE
     Indication: HIV infection
     Dosage: 16 MILLIGRAM, DAILY, 8MG*2X/J
     Route: 048
     Dates: start: 2012

REACTIONS (1)
  - Cardio-respiratory arrest [Recovered/Resolved]

NARRATIVE: CASE EVENT DATE: 20211011
